FAERS Safety Report 11467575 (Version 2)
Quarter: 2015Q3

REPORT INFORMATION
  Report Type: Spontaneous
  Country: GB (occurrence: GB)
  Receive Date: 20150908
  Receipt Date: 20150924
  Transmission Date: 20151125
  Serious: Yes (Other)
  Sender: FDA-Public Use
  Company Number: PHFR2015GB006445

PATIENT
  Age: 34 Year
  Sex: Female
  Weight: 46.5 kg

DRUGS (12)
  1. CLOZARIL [Suspect]
     Active Substance: CLOZAPINE
     Dosage: 275 MG, UNK
     Route: 048
  2. VENLAFAXINE [Concomitant]
     Active Substance: VENLAFAXINE HYDROCHLORIDE
     Indication: DEPRESSION
     Dosage: 75 MG, TID
     Route: 048
     Dates: start: 20150807
  3. CLOZARIL [Suspect]
     Active Substance: CLOZAPINE
     Dosage: 445 MG QD (IN MORNING)
     Route: 048
  4. MIRTAZAPINE. [Concomitant]
     Active Substance: MIRTAZAPINE
     Indication: DEPRESSION
     Dosage: 45 MG, QD
     Route: 048
     Dates: start: 20150807
  5. EPILIM [Concomitant]
     Active Substance: VALPROATE SODIUM
     Indication: PRODUCT USED FOR UNKNOWN INDICATION
     Route: 065
  6. ATROPIN SULFATE [Concomitant]
     Indication: SALIVARY HYPERSECRETION
     Dosage: UNK
     Route: 048
     Dates: start: 20150821, end: 20150909
  7. CLOZARIL [Suspect]
     Active Substance: CLOZAPINE
     Dosage: 225 MG, QD
     Route: 048
  8. CLOZARIL [Suspect]
     Active Substance: CLOZAPINE
     Dosage: 425 MG, QD
     Route: 048
     Dates: start: 20150821, end: 20150828
  9. PREGABALIN. [Concomitant]
     Active Substance: PREGABALIN
     Indication: ANXIETY
     Dosage: 320 MG, QD
     Route: 048
     Dates: start: 20150807, end: 20150828
  10. CLOZARIL [Suspect]
     Active Substance: CLOZAPINE
     Dosage: 225 MG, QHS
     Route: 048
  11. PIRENZEPINE [Concomitant]
     Active Substance: PIRENZEPINE
     Indication: SALIVARY HYPERSECRETION
     Dosage: 100 MG, QD
     Route: 048
     Dates: start: 20150807, end: 20150904
  12. CLOZARIL [Suspect]
     Active Substance: CLOZAPINE
     Dosage: UNK
     Route: 048
     Dates: start: 20150515

REACTIONS (6)
  - Fall [Unknown]
  - Eating disorder [Unknown]
  - Seizure [Recovered/Resolved]
  - Loss of consciousness [Unknown]
  - Urinary incontinence [Unknown]
  - Epilepsy [Unknown]

NARRATIVE: CASE EVENT DATE: 20150827
